FAERS Safety Report 19824103 (Version 1)
Quarter: 2021Q3

REPORT INFORMATION
  Report Type: Report from Study
  Country: JP (occurrence: JP)
  Receive Date: 20210913
  Receipt Date: 20210913
  Transmission Date: 20211014
  Serious: Yes (Other)
  Sender: FDA-Public Use
  Company Number: JP-INCYTE CORPORATION-2021IN008151

PATIENT

DRUGS (9)
  1. CONCENTRATED RED CELLS [Concomitant]
     Active Substance: HUMAN RED BLOOD CELL
     Indication: MYELOFIBROSIS
     Dosage: UNK
     Route: 042
  2. PREDONINE [Concomitant]
     Active Substance: PREDNISOLONE
     Indication: MYELOFIBROSIS
     Dosage: 20 MG
     Route: 048
     Dates: start: 20171020
  3. FLUCONAZOLE;INTERFERON ALFA?2B;METRONIDAZOLE [Concomitant]
     Indication: OPPORTUNISTIC INFECTION PROPHYLAXIS
     Dosage: 1 DF
     Route: 048
  4. PREDNISOLONE;TETRACAINE;TYROTHRICIN [Concomitant]
     Dosage: 4 MG
     Route: 048
     Dates: start: 20180310
  5. JAKAVI [Suspect]
     Active Substance: RUXOLITINIB
     Indication: MYELOFIBROSIS
     Dosage: 5 MG, BID
     Route: 048
     Dates: start: 20170316, end: 20180729
  6. ACICLOVIR;INTERFERON ALFA?2B;LIDOCAINE [Concomitant]
     Indication: OPPORTUNISTIC INFECTION PROPHYLAXIS
     Dosage: 1 DF
     Route: 048
  7. PREDONINE [Concomitant]
     Active Substance: PREDNISOLONE
     Dosage: 10 MG
     Route: 048
     Dates: start: 20171021
  8. PREDNISOLONE;TETRACAINE;TYROTHRICIN [Concomitant]
     Indication: MYELOFIBROSIS
     Dosage: 6 MG
     Route: 048
     Dates: start: 20171021, end: 20180309
  9. DAIPHEN [Concomitant]
     Active Substance: SULFAMETHOXAZOLE\TRIMETHOPRIM
     Indication: OPPORTUNISTIC INFECTION PROPHYLAXIS
     Dosage: APPROPRIATELY,UNK
     Route: 048

REACTIONS (3)
  - Malignant neoplasm progression [Unknown]
  - Myelosuppression [Unknown]
  - Myelofibrosis [Unknown]
